FAERS Safety Report 8847600 (Version 2)
Quarter: 2014Q3

REPORT INFORMATION
  Report Type: Spontaneous
  Country: CA (occurrence: CA)
  Receive Date: 20121018
  Receipt Date: 20140923
  Transmission Date: 20150326
  Serious: Yes (Hospitalization, Disabling, Other)
  Sender: FDA-Public Use
  Company Number: CA-ELI_LILLY_AND_COMPANY-CA201210001841

PATIENT
  Age: 36 Year
  Sex: Female
  Weight: 129 kg

DRUGS (8)
  1. SYNTHROID [Concomitant]
     Active Substance: LEVOTHYROXINE SODIUM
  2. ATIVAN [Concomitant]
     Active Substance: LORAZEPAM
  3. TRAZODONE [Concomitant]
     Active Substance: TRAZODONE HYDROCHLORIDE
  4. CYMBALTA [Suspect]
     Active Substance: DULOXETINE HYDROCHLORIDE
     Indication: PAIN
     Dosage: 90 MG, QD
     Route: 048
  5. FENTANYL. [Concomitant]
     Active Substance: FENTANYL
     Route: 062
  6. KEPPRA [Concomitant]
     Active Substance: LEVETIRACETAM
  7. CARBAMAZEPINE. [Concomitant]
     Active Substance: CARBAMAZEPINE
  8. OXAZEPAM. [Concomitant]
     Active Substance: OXAZEPAM

REACTIONS (19)
  - Nervous system disorder [Recovered/Resolved]
  - Ear pain [Recovered/Resolved]
  - Insomnia [Recovered/Resolved]
  - Hyperhidrosis [Recovered/Resolved]
  - Aphasia [Unknown]
  - Abnormal dreams [Recovered/Resolved]
  - Blood pressure increased [Recovered/Resolved]
  - Nightmare [Recovered/Resolved]
  - Dry throat [Recovered/Resolved]
  - Temperature difference of extremities [Recovered/Resolved]
  - Sinus headache [Recovered/Resolved]
  - Palpitations [Recovered/Resolved]
  - Vision blurred [Recovered/Resolved]
  - Sinus disorder [Recovered/Resolved]
  - Memory impairment [Recovered/Resolved]
  - Dysphagia [Recovered/Resolved]
  - Personality change [Recovered/Resolved]
  - Tinnitus [Recovered/Resolved]
  - Paraesthesia [Unknown]
